FAERS Safety Report 21609241 (Version 1)
Quarter: 2022Q4

REPORT INFORMATION
  Report Type: Spontaneous
  Country: US (occurrence: None)
  Receive Date: 20221116
  Receipt Date: 20221116
  Transmission Date: 20230113
  Serious: Yes (Death)
  Sender: FDA-Public Use
  Company Number: None

PATIENT
  Sex: Male
  Weight: 84.37 kg

DRUGS (21)
  1. CYRAMZA [Suspect]
     Active Substance: RAMUCIRUMAB
     Indication: Lung neoplasm malignant
     Dosage: OTHER FREQUENCY : Q21DAYS;?
     Route: 042
  2. CYRAMZA [Suspect]
     Active Substance: RAMUCIRUMAB
     Indication: Lung neoplasm malignant
     Dosage: OTHER FREQUENCY : Q21 DAYS;?
     Route: 042
  3. ARICEPT [Concomitant]
  4. ASPIRIN [Concomitant]
  5. ATORVASTATIN [Concomitant]
  6. DEXAMETHASONE [Concomitant]
  7. DIPHENHYDRAMINE [Concomitant]
  8. DOXYCYCLINE [Concomitant]
  9. FLOMAX [Concomitant]
  10. GABAPENTIN [Concomitant]
  11. METOPROLOL [Concomitant]
  12. MIRTAZAPINE [Concomitant]
  13. NORCO [Concomitant]
  14. OMEPRAZOLE [Concomitant]
  15. ONDANSETRON [Concomitant]
  16. PROCHLORPERAZINE [Concomitant]
  17. PYRIDOXINE [Concomitant]
  18. TRAMADOL [Concomitant]
  19. VASCEPA [Concomitant]
  20. VITAMIN D3 [Concomitant]
  21. ZOLPIDEM [Concomitant]
     Active Substance: ZOLPIDEM TARTRATE

REACTIONS (1)
  - Death [None]
